FAERS Safety Report 24806790 (Version 1)
Quarter: 2025Q1

REPORT INFORMATION
  Report Type: Spontaneous
  Country: FR (occurrence: FR)
  Receive Date: 20250104
  Receipt Date: 20250104
  Transmission Date: 20250408
  Serious: Yes (Hospitalization)
  Sender: AUROBINDO
  Company Number: FR-AFSSAPS-PO2024001416

PATIENT
  Age: 78 Year
  Sex: Female
  Weight: 60 kg

DRUGS (2)
  1. CARBOPLATIN [Suspect]
     Active Substance: CARBOPLATIN
     Indication: Clear cell endometrial carcinoma
     Route: 042
     Dates: start: 20240912, end: 20241024
  2. JEMPERLI [Suspect]
     Active Substance: DOSTARLIMAB-GXLY
     Indication: Clear cell endometrial carcinoma
     Route: 042
     Dates: start: 20240912, end: 20241024

REACTIONS (1)
  - Otitis media acute [Recovering/Resolving]

NARRATIVE: CASE EVENT DATE: 20241111
